FAERS Safety Report 5959808-3 (Version None)
Quarter: 2008Q4

REPORT INFORMATION
  Report Type: 
  Country: None (occurrence: None)
  Receive Date: 20081120
  Receipt Date: 20081110
  Transmission Date: 20090506
  Serious: Yes (Death, Hospitalization)
  Sender: FDA-Public Use
  Company Number: A0756884A

PATIENT
  Age: 67 Year
  Sex: Male
  Weight: 90.9 kg

DRUGS (1)
  1. AVANDIA [Suspect]
     Route: 048
     Dates: start: 20020101, end: 20061209

REACTIONS (1)
  - MYOCARDIAL INFARCTION [None]
